FAERS Safety Report 4294190-1 (Version None)
Quarter: 2004Q1

REPORT INFORMATION
  Report Type: 
  Country: None (occurrence: None)
  Receive Date: 20040211
  Receipt Date: 20040211
  Transmission Date: 20041129
  Serious: Yes (Other)
  Sender: FDA-Public Use
  Company Number: None

PATIENT
  Sex: Female

DRUGS (4)
  1. RELPAX [Suspect]
     Indication: MIGRAINE
     Dosage: 40 MG AS NEEDED PO
     Route: 048
  2. PROPRANOLOL [Concomitant]
  3. TEMAZEPAM [Concomitant]
  4. PATANOL [Concomitant]

REACTIONS (1)
  - HYPERSENSITIVITY [None]
